FAERS Safety Report 13981208 (Version 1)
Quarter: 2017Q3

REPORT INFORMATION
  Report Type: Spontaneous
  Country: US (occurrence: US)
  Receive Date: 20170915
  Receipt Date: 20170915
  Transmission Date: 20171128
  Serious: Yes (Death)
  Sender: FDA-Public Use
  Company Number: None

PATIENT
  Age: 52 Year
  Sex: Male
  Weight: 67 kg

DRUGS (6)
  1. DAUNORUBICIN [Concomitant]
     Active Substance: DAUNORUBICIN
  2. PREDNISONE. [Concomitant]
     Active Substance: PREDNISONE
  3. VINCRISTINE [Concomitant]
     Active Substance: VINCRISTINE
  4. PEG ASPARGASE [Suspect]
     Active Substance: PEGASPARGASE
     Indication: ACUTE LYMPHOCYTIC LEUKAEMIA
     Dosage: ?          OTHER FREQUENCY:ONCE;?
     Route: 030
     Dates: start: 20170714, end: 20170714
  5. ENTACAVIR [Concomitant]
  6. PENTAMIDINE [Concomitant]
     Active Substance: PENTAMIDINE

REACTIONS (4)
  - Septic shock [None]
  - Multiple organ dysfunction syndrome [None]
  - Abdominal compartment syndrome [None]
  - Pancreatitis [None]

NARRATIVE: CASE EVENT DATE: 20170716
